FAERS Safety Report 18407521 (Version 3)
Quarter: 2020Q4

REPORT INFORMATION
  Report Type: Spontaneous
  Country: US (occurrence: US)
  Receive Date: 20201020
  Receipt Date: 20201125
  Transmission Date: 20210114
  Serious: Yes (Other)
  Sender: FDA-Public Use
  Company Number: US-PFIZER INC-2020265662

PATIENT
  Age: 26 Year
  Sex: Male

DRUGS (1)
  1. XYNTHA [Suspect]
     Active Substance: ANTIHEMOPHILIC FACTOR, HUMAN RECOMBINANT RESIDUES 743-1636 DELETED
     Dosage: UNK (TOOK A DOSE)

REACTIONS (4)
  - Product quality issue [Unknown]
  - Haemorrhage [Unknown]
  - Poor quality product administered [Unknown]
  - Product storage error [Unknown]
